FAERS Safety Report 5020058-9 (Version None)
Quarter: 2006Q2

REPORT INFORMATION
  Report Type: 
  Country: None (occurrence: None)
  Receive Date: 20060607
  Receipt Date: 20060318
  Transmission Date: 20061013
  Serious: Yes (Other)
  Sender: FDA-Public Use
  Company Number: GB-GLAXOSMITHKLINE-B0416387A

PATIENT
  Age: 40 Year
  Sex: Male

DRUGS (6)
  1. ZIAGEN [Suspect]
     Indication: HIV INFECTION
     Dosage: 600MG PER DAY
     Route: 048
     Dates: start: 20060111, end: 20060117
  2. DAPSONE [Suspect]
     Dosage: 100MG PER DAY
     Route: 048
     Dates: start: 20051219, end: 20060119
  3. CO-TRIMOXAZOLE [Concomitant]
     Indication: ANTIBIOTIC PROPHYLAXIS
     Dosage: 480MG PER DAY
     Route: 048
     Dates: start: 20051201, end: 20051214
  4. REYATAZ [Concomitant]
     Dosage: 300MG PER DAY
     Route: 048
     Dates: start: 20060111
  5. RITONAVIR [Concomitant]
     Dosage: 100MG PER DAY
     Route: 048
     Dates: start: 20060111
  6. LAMIVUDINE [Concomitant]
     Dosage: 300MG PER DAY
     Route: 048
     Dates: start: 20060111

REACTIONS (5)
  - HEADACHE [None]
  - MYALGIA [None]
  - NAUSEA [None]
  - PYREXIA [None]
  - RASH [None]
